FAERS Safety Report 5972024-4 (Version None)
Quarter: 2008Q4

REPORT INFORMATION
  Report Type: 
  Country: None (occurrence: None)
  Receive Date: 20081125
  Receipt Date: 20081107
  Transmission Date: 20090506
  Serious: Yes (Hospitalization)
  Sender: FDA-Public Use
  Company Number: SPV1-2008-02475

PATIENT
  Sex: Female

DRUGS (2)
  1. PENTASA [Suspect]
     Indication: CROHN'S DISEASE
     Dosage: DAILY, ORAL, 12 DF, DAILY, ORAL
     Route: 048
     Dates: start: 20070701, end: 20080901
  2. PENTASA [Suspect]
     Indication: CROHN'S DISEASE
     Dosage: DAILY, ORAL, 12 DF, DAILY, ORAL
     Route: 048
     Dates: start: 20080901, end: 20081006

REACTIONS (5)
  - ASTHENIA [None]
  - CONDITION AGGRAVATED [None]
  - CROHN'S DISEASE [None]
  - OFF LABEL USE [None]
  - PAIN [None]
